FAERS Safety Report 19780459 (Version 1)
Quarter: 2021Q3

REPORT INFORMATION
  Report Type: Report from Study
  Country: CA (occurrence: CA)
  Receive Date: 20210902
  Receipt Date: 20210902
  Transmission Date: 20211014
  Serious: Yes (Hospitalization)
  Sender: FDA-Public Use
  Company Number: CA-PFIZER INC-202101082032

PATIENT
  Age: 54 Year
  Sex: Female

DRUGS (11)
  1. INDAPAMIDE. [Concomitant]
     Active Substance: INDAPAMIDE
  2. PREDNISONE. [Concomitant]
     Active Substance: PREDNISONE
  3. VALSARTAN. [Concomitant]
     Active Substance: VALSARTAN
  4. RITUXIMAB. [Suspect]
     Active Substance: RITUXIMAB
     Indication: GRANULOMATOSIS WITH POLYANGIITIS
     Dosage: 1000 MG
     Route: 041
  5. SYNTHROID [Concomitant]
     Active Substance: LEVOTHYROXINE SODIUM
  6. SIBELIUM [FLUNARIZINE DIHYDROCHLORIDE] [Concomitant]
     Active Substance: FLUNARIZINE HYDROCHLORIDE
  7. METFORMIN [Concomitant]
     Active Substance: METFORMIN HYDROCHLORIDE
  8. PANTOPRAZOLE MAGNESIUM [Concomitant]
     Active Substance: PANTOPRAZOLE MAGNESIUM
  9. VENLAFAXINE HYDROCHLORIDE. [Concomitant]
     Active Substance: VENLAFAXINE HYDROCHLORIDE
  10. IMURAN [Concomitant]
     Active Substance: AZATHIOPRINE
  11. ROSUVASTATIN CALCIUM. [Concomitant]
     Active Substance: ROSUVASTATIN CALCIUM

REACTIONS (3)
  - Ill-defined disorder [Unknown]
  - Pain [Unknown]
  - Pyrexia [Unknown]
